FAERS Safety Report 14198337 (Version 1)
Quarter: 2017Q4

REPORT INFORMATION
  Report Type: Spontaneous
  Country: US (occurrence: US)
  Receive Date: 20171117
  Receipt Date: 20171117
  Transmission Date: 20180321
  Serious: Yes (Hospitalization)
  Sender: FDA-Public Use
  Company Number: US-SHIRE-US201729277

PATIENT
  Age: 3 Year
  Sex: Male

DRUGS (1)
  1. ONCASPAR [Suspect]
     Active Substance: PEGASPARGASE
     Indication: ACUTE LYMPHOCYTIC LEUKAEMIA
     Dosage: 1600 IU, UNK
     Route: 042
     Dates: start: 20171030, end: 20171030

REACTIONS (5)
  - Emotional distress [Recovered/Resolved]
  - Tachycardia [Recovered/Resolved]
  - Cough [Recovered/Resolved]
  - Vomiting [Recovered/Resolved]
  - Swelling face [Recovered/Resolved]

NARRATIVE: CASE EVENT DATE: 20171030
